FAERS Safety Report 13644084 (Version 1)
Quarter: 2017Q2

REPORT INFORMATION
  Report Type: Spontaneous
  Country: US (occurrence: US)
  Receive Date: 20170612
  Receipt Date: 20170612
  Transmission Date: 20170830
  Serious: Yes (Life-Threatening, Hospitalization, Other)
  Sender: FDA-Public Use
  Company Number: US-ELI_LILLY_AND_COMPANY-US201706003053

PATIENT
  Sex: Female

DRUGS (1)
  1. FORTEO [Suspect]
     Active Substance: TERIPARATIDE
     Indication: BONE DISORDER
     Dosage: UNK, DAILY
     Route: 065
     Dates: start: 201511

REACTIONS (3)
  - Myocardial infarction [Recovering/Resolving]
  - Bronchitis [Recovering/Resolving]
  - Cardiac failure congestive [Recovering/Resolving]
